FAERS Safety Report 15467337 (Version 1)
Quarter: 2018Q4

REPORT INFORMATION
  Report Type: Spontaneous
  Country: JP (occurrence: JP)
  Receive Date: 20181005
  Receipt Date: 20181005
  Transmission Date: 20190204
  Serious: Yes (Hospitalization)
  Sender: FDA-Public Use
  Company Number: JP-TEVA-2018-JP-002264J

PATIENT
  Age: 79 Year
  Sex: Female

DRUGS (2)
  1. CLINDAMYCIN INJECTION 600MG ^TAIYO^ [Suspect]
     Active Substance: CLINDAMYCIN HYDROCHLORIDE
     Route: 041
     Dates: start: 201801
  2. CLINDAMYCIN INJECTION 600MG ^TAIYO^ [Suspect]
     Active Substance: CLINDAMYCIN HYDROCHLORIDE
     Indication: PROPHYLAXIS
     Dosage: 1200 MILLIGRAM DAILY;
     Route: 041
     Dates: start: 201712

REACTIONS (2)
  - Generalised erythema [Recovered/Resolved]
  - Toxic skin eruption [Recovered/Resolved]
